FAERS Safety Report 7200274-8 (Version None)
Quarter: 2010Q4

REPORT INFORMATION
  Report Type: 
  Country: None (occurrence: None)
  Receive Date: 20101228
  Receipt Date: 20101217
  Transmission Date: 20110411
  Serious: Yes (Other)
  Sender: FDA-Public Use
  Company Number: B0678281A

PATIENT
  Sex: Female

DRUGS (3)
  1. SUMATRIPTAN [Suspect]
     Indication: MIGRAINE
     Dosage: 100MG PER DAY
     Route: 048
     Dates: end: 20100915
  2. PARACETAMOL [Concomitant]
  3. NSAID [Concomitant]
     Route: 065

REACTIONS (3)
  - ARRHYTHMIA [None]
  - DAYDREAMING [None]
  - EPILEPSY [None]
